FAERS Safety Report 6634075-6 (Version None)
Quarter: 2010Q1

REPORT INFORMATION
  Report Type: 
  Country: None (occurrence: None)
  Receive Date: 20100315
  Receipt Date: 20100309
  Transmission Date: 20100710
  Serious: Yes (Other)
  Sender: FDA-Public Use
  Company Number: US-RB-004589-10

PATIENT
  Age: 75 Year
  Sex: Male

DRUGS (2)
  1. MUCINEX [Suspect]
     Route: 048
     Dates: start: 20100304
  2. PLAVIX [Concomitant]

REACTIONS (2)
  - HAEMOPTYSIS [None]
  - HEADACHE [None]
